FAERS Safety Report 4386398-1 (Version None)
Quarter: 2004Q2

REPORT INFORMATION
  Report Type: 
  Country: None (occurrence: None)
  Receive Date: 20040623
  Receipt Date: 20040609
  Transmission Date: 20050107
  Serious: Yes (Other)
  Sender: FDA-Public Use
  Company Number: US-JNJFOC-20040501797

PATIENT
  Age: 39 Year
  Sex: Female

DRUGS (11)
  1. DURAGESIC [Suspect]
     Indication: PAIN
     Dosage: SEE IMAGE
     Route: 062
     Dates: end: 20020801
  2. DURAGESIC [Suspect]
     Indication: PAIN
     Dosage: SEE IMAGE
     Route: 062
     Dates: start: 20000101
  3. LODINE [Concomitant]
  4. BACLOFEN [Concomitant]
  5. AMITRIPTYLINE HCL [Concomitant]
  6. CLONAZEPAM [Concomitant]
  7. ZOMIG [Concomitant]
  8. ZANAFLEX [Concomitant]
  9. TRIVORA (EUGYNON) [Concomitant]
  10. MIRALAX [Concomitant]
  11. STOOL SOFTNER (DOCUSATE SODIUM) [Concomitant]

REACTIONS (21)
  - ABDOMINAL PAIN [None]
  - ASTHENIA [None]
  - BACK INJURY [None]
  - BLOOD GLUCOSE DECREASED [None]
  - EATING DISORDER [None]
  - FACE INJURY [None]
  - FALL [None]
  - FATIGUE [None]
  - HEAD INJURY [None]
  - HEAT STROKE [None]
  - IMPAIRED DRIVING ABILITY [None]
  - LETHARGY [None]
  - LIMB INJURY [None]
  - LOSS OF CONSCIOUSNESS [None]
  - OVERDOSE [None]
  - POLYTRAUMATISM [None]
  - ROCKY MOUNTAIN SPOTTED FEVER [None]
  - SKIN LACERATION [None]
  - TOOTH FRACTURE [None]
  - VOMITING [None]
  - WEIGHT DECREASED [None]
